FAERS Safety Report 14519174 (Version 3)
Quarter: 2018Q2

REPORT INFORMATION
  Report Type: Spontaneous
  Country: JP (occurrence: JP)
  Receive Date: 20180212
  Receipt Date: 20180411
  Transmission Date: 20180711
  Serious: Yes (Hospitalization)
  Sender: FDA-Public Use
  Company Number: JP-PFIZER INC-2018057027

PATIENT
  Age: 84 Year
  Sex: Male
  Weight: 77 kg

DRUGS (10)
  1. ALLOPURINOL. [Concomitant]
     Active Substance: ALLOPURINOL
     Dosage: 100 MG, ONCE DAILY AFTER BREAKFAST
     Route: 048
  2. FUROSEMIDE. [Concomitant]
     Active Substance: FUROSEMIDE
     Dosage: 40 MG, TWICE DAILY AFTER BREAKFAST AND DINNER
     Route: 048
  3. VILDAGLIPTIN [Concomitant]
     Active Substance: VILDAGLIPTIN
     Dosage: 50 MG, ONCE DAILY AFTER BREAKFAST
     Route: 048
  4. LIPITOR [Suspect]
     Active Substance: ATORVASTATIN CALCIUM
     Dosage: 10 MG, ONCE DAILY AFTER BREAKFAST
     Route: 048
  5. NIFEDIPINE. [Concomitant]
     Active Substance: NIFEDIPINE
     Dosage: 60 MG, ONCE DAILY AFTER BREAKFAST
     Route: 048
  6. CLOPIDOGREL [Concomitant]
     Active Substance: CLOPIDOGREL BISULFATE
     Dosage: 75 MG, ONCE DAILY AFTER BREAKFAST
     Route: 048
  7. SPIRONOLACTONE. [Concomitant]
     Active Substance: SPIRONOLACTONE
     Dosage: 25 MG, ONCE DAILY AFTER BREAKFAST
     Route: 048
  8. GASTER [Suspect]
     Active Substance: FAMOTIDINE
     Dosage: 20 MG, ONCE DAILY AFTER BREAKFAST
     Route: 048
  9. TELMISARTAN. [Concomitant]
     Active Substance: TELMISARTAN
     Dosage: 40 MG, ONCE DAILY AFTER BREAKFAST
     Route: 048
  10. ATENOLOL. [Concomitant]
     Active Substance: ATENOLOL
     Dosage: 25 MG, TWICE DAILY AFTER BREAKFAST AND DINNER
     Route: 048

REACTIONS (1)
  - Pericarditis tuberculous [Recovering/Resolving]
